FAERS Safety Report 7645727-3 (Version None)
Quarter: 2011Q3

REPORT INFORMATION
  Report Type: 
  Country: None (occurrence: None)
  Receive Date: 20110729
  Receipt Date: 20110721
  Transmission Date: 20111222
  Serious: Yes (Other)
  Sender: FDA-Public Use
  Company Number: CN-ASTRAZENECA-2011SE43329

PATIENT
  Age: 32 Year
  Sex: Male

DRUGS (1)
  1. LIDOCAINE [Suspect]

REACTIONS (10)
  - LACRIMATION INCREASED [None]
  - URTICARIA [None]
  - HEADACHE [None]
  - SWELLING FACE [None]
  - RASH PAPULAR [None]
  - DRUG HYPERSENSITIVITY [None]
  - THROAT TIGHTNESS [None]
  - DIZZINESS [None]
  - CONJUNCTIVAL HYPERAEMIA [None]
  - FLUSHING [None]
